FAERS Safety Report 7422943-7 (Version None)
Quarter: 2011Q2

REPORT INFORMATION
  Report Type: 
  Country: None (occurrence: None)
  Receive Date: 20110411
  Receipt Date: 20110329
  Transmission Date: 20111010
  Serious: Yes (Death, Other)
  Sender: FDA-Public Use
  Company Number: 2011SP014387

PATIENT
  Age: 4 Year
  Sex: Male
  Weight: 17 kg

DRUGS (6)
  1. OXYGEN [Concomitant]
  2. LAUGHING GAS [Concomitant]
  3. VECURONIUM BROMIDE [Suspect]
     Indication: NEUROMUSCULAR BLOCKING THERAPY
     Dosage: 2 MG; ONCE; IV
     Route: 042
     Dates: start: 20100101
  4. PENTAZOCINE LACTATE [Concomitant]
  5. SEVOFLURANE [Concomitant]
  6. DIPRIVAN [Concomitant]

REACTIONS (5)
  - MULTI-ORGAN FAILURE [None]
  - CARDIAC ARREST [None]
  - HYPOXIC-ISCHAEMIC ENCEPHALOPATHY [None]
  - CARDIAC FAILURE [None]
  - DRUG INEFFECTIVE [None]
